FAERS Safety Report 8894087 (Version 1)
Quarter: 2012Q4

REPORT INFORMATION
  Report Type: 
  Country: GB (occurrence: GB)
  Receive Date: 20121108
  Receipt Date: 20121108
  Transmission Date: 20130627
  Serious: Yes (Hospitalization, Disabling, Other)
  Sender: FDA-Public Use
  Company Number: GB-PFIZER INC-2012274289

PATIENT
  Age: 22 Year
  Sex: Male

DRUGS (9)
  1. VFEND [Suspect]
     Dosage: 200 mg, 2x/day
     Route: 048
  2. LANSOPRAZOLE [Concomitant]
     Dosage: 30 mg, 1x/day
     Route: 048
  3. CALCEOS [Concomitant]
     Dosage: 1 DF, 2x/day
     Route: 048
  4. ALENDRONIC ACID [Concomitant]
     Dosage: 70 mg, weekly
     Route: 048
  5. PREDNISOLONE [Concomitant]
     Dosage: 15 mg, 1x/day
     Route: 048
  6. CICLOSPORIN [Concomitant]
     Dosage: 50 mg, 2x/day
     Route: 048
  7. CICLOSPORIN [Concomitant]
     Dosage: 100 mg, 2x/day
  8. PHENOXYMETHYLPENICILLIN [Concomitant]
     Dosage: 250 mg, 2x/day long term
     Route: 048
  9. CO-TRIMOXAZOLE [Concomitant]
     Dosage: 2 DF, 80mg/400mg tablets once daily, 3 days a week
     Route: 048

REACTIONS (4)
  - Cheilitis [Unknown]
  - Oral disorder [Unknown]
  - Lower respiratory tract infection [Unknown]
  - Drug hypersensitivity [Unknown]
